FAERS Safety Report 4978696-5 (Version None)
Quarter: 2006Q2

REPORT INFORMATION
  Report Type: 
  Country: None (occurrence: None)
  Receive Date: 20060420
  Receipt Date: 20051221
  Transmission Date: 20061013
  Serious: Yes (Hospitalization, Disabling, Other)
  Sender: FDA-Public Use
  Company Number: US-MERCK-0512USA03405

PATIENT
  Age: 52 Year
  Sex: Male
  Weight: 84 kg

DRUGS (19)
  1. VIOXX [Suspect]
     Indication: OSTEOARTHRITIS
     Route: 048
     Dates: start: 20020203, end: 20020222
  2. VIOXX [Suspect]
     Indication: ARTHRALGIA
     Route: 048
     Dates: start: 20020203, end: 20020222
  3. REBETOL [Concomitant]
     Indication: HEPATITIS
     Route: 065
  4. EFFEXOR [Concomitant]
     Indication: DEPRESSION
     Route: 065
     Dates: start: 20000401
  5. IBUPROFEN [Concomitant]
     Route: 065
  6. PEG-INTRON [Concomitant]
     Indication: HEPATITIS
     Route: 065
  7. TRAZODONE HYDROCHLORIDE [Concomitant]
     Route: 065
  8. ASPIRIN [Concomitant]
     Route: 065
  9. ZOCOR [Concomitant]
     Route: 065
  10. COMBIVENT [Concomitant]
     Route: 055
  11. DOXYCYCLINE [Concomitant]
     Route: 065
     Dates: end: 20020315
  12. ROBITUSSIN [Concomitant]
     Route: 065
  13. PEPCID [Concomitant]
     Route: 065
  14. METOPROLOL [Concomitant]
     Route: 065
  15. HEPARIN [Concomitant]
     Route: 058
  16. JEVITY [Concomitant]
     Route: 065
  17. STUDY DRUG (UNSPECIFIED) [Concomitant]
     Indication: HEPATITIS C
     Route: 065
     Dates: start: 20020101
  18. COMPAZINE [Concomitant]
     Route: 065
  19. METADATE CD [Concomitant]
     Route: 065

REACTIONS (14)
  - ACUTE MYOCARDIAL INFARCTION [None]
  - AMNESIA [None]
  - ANOXIC ENCEPHALOPATHY [None]
  - CARDIAC ARREST [None]
  - CORONARY ARTERY DISEASE [None]
  - DYSPHAGIA [None]
  - FALL [None]
  - HYPERCHOLESTEROLAEMIA [None]
  - RESPIRATORY ARREST [None]
  - RESPIRATORY FAILURE [None]
  - ROTATOR CUFF SYNDROME [None]
  - STAPHYLOCOCCAL INFECTION [None]
  - URETHRAL STENOSIS [None]
  - VENTRICULAR TACHYCARDIA [None]
